FAERS Safety Report 17010738 (Version 1)
Quarter: 2019Q4

REPORT INFORMATION
  Report Type: Spontaneous
  Country: US (occurrence: US)
  Receive Date: 20190930
  Receipt Date: 20190930
  Transmission Date: 20200122
  Serious: Yes (Hospitalization)
  Sender: FDA-Public Use
  Company Number: None

PATIENT
  Age: 70 Year
  Sex: Male

DRUGS (1)
  1. EMPAGLIFLOZIN [Suspect]
     Active Substance: EMPAGLIFLOZIN
     Indication: DIABETES MELLITUS
     Dosage: ?          OTHER DOSE:12.5MG;?
     Route: 048
     Dates: start: 20190130, end: 20190326

REACTIONS (5)
  - Urinary tract infection [None]
  - Hallucination [None]
  - Blood creatinine increased [None]
  - Dizziness [None]
  - Blood urea increased [None]

NARRATIVE: CASE EVENT DATE: 20190516
